FAERS Safety Report 20177352 (Version 2)
Quarter: 2021Q4

REPORT INFORMATION
  Report Type: Report from Study
  Country: US (occurrence: US)
  Receive Date: 20211213
  Receipt Date: 20211217
  Transmission Date: 20220303
  Serious: No
  Sender: FDA-Public Use
  Company Number: US-NOVARTISTESTPH-NVSC2021US285009

PATIENT
  Sex: Female

DRUGS (1)
  1. ENTRESTO [Suspect]
     Active Substance: SACUBITRIL\VALSARTAN
     Indication: Cardiac failure congestive
     Dosage: 24.26 MG, QD (24.3 MG SACUBITRIL AND 25.7 MG VALSARTAN)
     Route: 048

REACTIONS (2)
  - Hypotension [Unknown]
  - Dizziness [Unknown]
